FAERS Safety Report 5915509-9 (Version None)
Quarter: 2008Q4

REPORT INFORMATION
  Report Type: 
  Country: None (occurrence: None)
  Receive Date: 20081010
  Receipt Date: 20081001
  Transmission Date: 20090506
  Serious: Yes (Other)
  Sender: FDA-Public Use
  Company Number: US-PFIZER INC-2008021096

PATIENT
  Sex: Female
  Weight: 82.1 kg

DRUGS (4)
  1. LYRICA [Suspect]
     Indication: FIBROMYALGIA
     Route: 048
     Dates: start: 20080117
  2. GABAPENTIN [Suspect]
  3. PREDNISONE TAB [Suspect]
  4. AMITRIPTYLINE HCL [Suspect]

REACTIONS (7)
  - CHILLS [None]
  - DRY THROAT [None]
  - FEELING COLD [None]
  - INTERVERTEBRAL DISC DEGENERATION [None]
  - THROAT IRRITATION [None]
  - WEIGHT DECREASED [None]
  - WEIGHT INCREASED [None]
